FAERS Safety Report 4816325-1 (Version None)
Quarter: 2005Q4

REPORT INFORMATION
  Report Type: 
  Country: None (occurrence: None)
  Receive Date: 20051028
  Receipt Date: 20051013
  Transmission Date: 20060501
  Serious: Yes (Other)
  Sender: FDA-Public Use
  Company Number: DEU-2005-0001730

PATIENT
  Sex: Male

DRUGS (1)
  1. OXYCODONE HCL [Suspect]
     Dosage: ORAL
     Route: 048

REACTIONS (7)
  - DRUG PHYSIOLOGIC INCOMPATIBILITY [None]
  - HYPOXIA [None]
  - LOWER RESPIRATORY TRACT INFECTION [None]
  - MYOCLONUS [None]
  - RESPIRATORY ARREST [None]
  - SOMNOLENCE [None]
  - URINARY TRACT INFECTION [None]
